FAERS Safety Report 9938115 (Version 1)
Quarter: 2014Q1

REPORT INFORMATION
  Report Type: Report from Study
  Country: US (occurrence: US)
  Receive Date: 20140303
  Receipt Date: 20140303
  Transmission Date: 20141002
  Serious: Yes (Other)
  Sender: FDA-Public Use
  Company Number: US-ROCHE-1342841

PATIENT
  Sex: Female

DRUGS (16)
  1. LUCENTIS [Suspect]
     Indication: DIABETIC RETINAL OEDEMA
     Route: 050
     Dates: start: 20110506
  2. LUCENTIS [Suspect]
     Indication: DIABETIC RETINOPATHY
     Route: 050
     Dates: start: 20110506
  3. LUCENTIS [Suspect]
     Route: 050
     Dates: start: 20120314
  4. LUCENTIS [Suspect]
     Route: 050
     Dates: start: 20120323
  5. LUCENTIS [Suspect]
     Route: 050
     Dates: start: 20120806
  6. LUCENTIS [Suspect]
     Route: 050
     Dates: start: 20121015
  7. AVASTIN [Suspect]
     Indication: DIABETIC RETINAL OEDEMA
     Route: 050
  8. TROPICAMIDE [Concomitant]
     Route: 065
  9. PHENYLEPHRINE [Concomitant]
     Route: 065
  10. PROPARACAINE [Concomitant]
  11. BETADINE [Concomitant]
  12. LIDOCAINE [Concomitant]
     Route: 065
  13. LISINOPRIL [Concomitant]
  14. LOVASTATIN [Concomitant]
  15. OMNIPRED [Concomitant]
     Dosage: X2 WEEKS; BID X1 WEEK
     Route: 047
  16. NEVANAC [Concomitant]
     Dosage: X2 WEEKS; BID X1WEEK
     Route: 047

REACTIONS (5)
  - Retinal oedema [Unknown]
  - Vitreous floaters [Unknown]
  - Cutis laxa [Unknown]
  - Overdose [Unknown]
  - Off label use [Unknown]
